FAERS Safety Report 13100645 (Version 2)
Quarter: 2017Q1

REPORT INFORMATION
  Report Type: Report from Study
  Country: CA (occurrence: CA)
  Receive Date: 20170110
  Receipt Date: 20170215
  Transmission Date: 20170428
  Serious: Yes (Other)
  Sender: FDA-Public Use
  Company Number: PHHY2016CA104031

PATIENT
  Sex: Female

DRUGS (2)
  1. TAFINLAR [Suspect]
     Active Substance: DABRAFENIB MESYLATE
     Indication: METASTATIC MALIGNANT MELANOMA
     Dosage: 300 MG, QD
     Route: 048
     Dates: start: 20160717
  2. MEKINIST [Suspect]
     Active Substance: TRAMETINIB DIMETHYL SULFOXIDE
     Indication: METASTATIC MALIGNANT MELANOMA
     Dosage: 2 MG, QD
     Route: 048
     Dates: start: 20160717

REACTIONS (17)
  - Eating disorder [Unknown]
  - Back pain [Unknown]
  - Constipation [Unknown]
  - Blister [Unknown]
  - Hyperhidrosis [Unknown]
  - Decreased appetite [Unknown]
  - Pruritus [Unknown]
  - Body temperature increased [Unknown]
  - Memory impairment [Unknown]
  - Staphylococcal infection [Unknown]
  - Fatigue [Unknown]
  - Fall [Unknown]
  - Blister infected [Unknown]
  - Asthenia [Unknown]
  - Pyrexia [Unknown]
  - Nausea [Unknown]
  - Eye irritation [Unknown]
